FAERS Safety Report 14053273 (Version 1)
Quarter: 2017Q4

REPORT INFORMATION
  Report Type: Spontaneous
  Country: US (occurrence: US)
  Receive Date: 20171005
  Receipt Date: 20171005
  Transmission Date: 20180321
  Serious: No
  Sender: FDA-Public Use
  Company Number: US-ARBOR PHARMACEUTICALS, LLC-US-2016ARB002308

PATIENT

DRUGS (2)
  1. EVEKEO [Suspect]
     Active Substance: AMPHETAMINE SULFATE
     Indication: ATTENTION DEFICIT/HYPERACTIVITY DISORDER
     Dosage: 20 MG, TID
  2. EVEKEO [Suspect]
     Active Substance: AMPHETAMINE SULFATE
     Indication: AUTISM SPECTRUM DISORDER
     Dosage: 90 MG, QD

REACTIONS (3)
  - Paranoia [Recovered/Resolved]
  - Intentional product use issue [Unknown]
  - Hallucination, auditory [Recovered/Resolved]
